FAERS Safety Report 17431104 (Version 1)
Quarter: 2020Q1

REPORT INFORMATION
  Report Type: Spontaneous
  Country: US (occurrence: US)
  Receive Date: 20200217
  Receipt Date: 20200217
  Transmission Date: 20200409
  Serious: No
  Sender: FDA-Public Use
  Company Number: None

PATIENT
  Age: 4 Month
  Sex: Female
  Weight: 5.4 kg

DRUGS (1)
  1. SYNAGIS [Suspect]
     Active Substance: PALIVIZUMAB
     Dosage: ?          OTHER FREQUENCY:28 DAYS;?

REACTIONS (2)
  - Respiratory disorder [None]
  - Pyrexia [None]

NARRATIVE: CASE EVENT DATE: 20200124
